FAERS Safety Report 7553376-0 (Version None)
Quarter: 2011Q2

REPORT INFORMATION
  Report Type: 
  Country: None (occurrence: None)
  Receive Date: 20110617
  Receipt Date: 20110408
  Transmission Date: 20111010
  Serious: No
  Sender: FDA-Public Use
  Company Number: A0922094A

PATIENT
  Age: 70 Year
  Sex: Female

DRUGS (2)
  1. PREDNISONE [Concomitant]
  2. PROMACTA [Suspect]
     Indication: IDIOPATHIC THROMBOCYTOPENIC PURPURA
     Route: 048
     Dates: start: 20110320

REACTIONS (1)
  - RASH PRURITIC [None]
